FAERS Safety Report 25403025 (Version 1)
Quarter: 2025Q2

REPORT INFORMATION
  Report Type: Spontaneous
  Country: US (occurrence: US)
  Receive Date: 20250605
  Receipt Date: 20250605
  Transmission Date: 20250716
  Serious: No
  Sender: SANOFI AVENTIS
  Company Number: US-SA-2025SA158771

PATIENT
  Age: 34 Year
  Sex: Female
  Weight: 84.55 kg

DRUGS (2)
  1. DUPIXENT [Suspect]
     Active Substance: DUPILUMAB
     Indication: Psoriasis
     Dosage: 300 MG, QOW
     Route: 058
  2. CYCLOSPORINE [Suspect]
     Active Substance: CYCLOSPORINE

REACTIONS (6)
  - Pustular psoriasis [Unknown]
  - Dry skin [Unknown]
  - Psoriasis [Unknown]
  - Pruritus [Unknown]
  - Drug intolerance [Unknown]
  - Product use in unapproved indication [Unknown]
